FAERS Safety Report 23553939 (Version 1)
Quarter: 2024Q1

REPORT INFORMATION
  Report Type: Spontaneous
  Country: CN (occurrence: CN)
  Receive Date: 20240222
  Receipt Date: 20240222
  Transmission Date: 20240410
  Serious: Yes (Hospitalization)
  Sender: FDA-Public Use
  Company Number: CN-PFIZER INC-PV202400024176

PATIENT
  Age: 9 Year
  Sex: Female
  Weight: 33.8 kg

DRUGS (7)
  1. ZITHROMAX [Suspect]
     Active Substance: AZITHROMYCIN DIHYDRATE
     Indication: Symptomatic treatment
     Dosage: 0.25 G, 1X/DAY
     Route: 048
     Dates: start: 20240108, end: 20240111
  2. HERBALS [Suspect]
     Active Substance: HERBALS
     Indication: Symptomatic treatment
     Dosage: 0.12 G, 3X/DAY
     Route: 048
     Dates: start: 20240108, end: 20240111
  3. HERBALS [Suspect]
     Active Substance: HERBALS
     Indication: Symptomatic treatment
     Dosage: 10 G, 3X/DAY
     Route: 048
     Dates: start: 20240108, end: 20240111
  4. CARBOCYSTEINE [Suspect]
     Active Substance: CARBOCYSTEINE
     Indication: Symptomatic treatment
     Dosage: 10 ML, 3X/DAY
     Route: 048
     Dates: start: 20240108, end: 20240111
  5. HERBALS [Suspect]
     Active Substance: HERBALS
     Indication: Symptomatic treatment
     Dosage: 2 G, 3X/DAY
     Route: 048
     Dates: start: 20240108, end: 20240111
  6. CEFUROXIME [Concomitant]
     Active Substance: CEFUROXIME
     Route: 041
  7. AMBROXOL [Concomitant]
     Active Substance: AMBROXOL
     Route: 041

REACTIONS (3)
  - Dermatitis bullous [Recovering/Resolving]
  - Off label use [Unknown]
  - Product use issue [Unknown]

NARRATIVE: CASE EVENT DATE: 20240108
